FAERS Safety Report 18431629 (Version 4)
Quarter: 2021Q4

REPORT INFORMATION
  Report Type: Spontaneous
  Country: US (occurrence: US)
  Receive Date: 20201027
  Receipt Date: 20211001
  Transmission Date: 20220304
  Serious: Yes (Disabling, Other)
  Sender: FDA-Public Use
  Company Number: US-PURDUE-USA-2020-0158707

PATIENT
  Sex: Male

DRUGS (3)
  1. OXYCONTIN [Suspect]
     Active Substance: OXYCODONE HYDROCHLORIDE
     Indication: Pain
     Dosage: 240 MG, DAILY
     Route: 048
  2. OXYCONTIN [Suspect]
     Active Substance: OXYCODONE HYDROCHLORIDE
     Indication: Cerebrovascular accident
  3. OXYCODONE HYDROCHLORIDE [Suspect]
     Active Substance: OXYCODONE HYDROCHLORIDE
     Indication: Product used for unknown indication
     Dosage: UNKNOWN
     Route: 065

REACTIONS (10)
  - Gambling disorder [Unknown]
  - Personality disorder [Unknown]
  - Disability [Unknown]
  - Drug dependence [Unknown]
  - Memory impairment [Unknown]
  - Adverse drug reaction [Unknown]
  - Hypersomnia [Unknown]
  - Vertigo [Unknown]
  - Blood pressure increased [Unknown]
  - Anxiety [Unknown]
